FAERS Safety Report 6734924-7 (Version None)
Quarter: 2010Q2

REPORT INFORMATION
  Report Type: 
  Country: None (occurrence: None)
  Receive Date: 20100521
  Receipt Date: 20100513
  Transmission Date: 20101027
  Serious: Yes (Hospitalization)
  Sender: FDA-Public Use
  Company Number: 2009BI036972

PATIENT
  Age: 48 Year
  Sex: Female
  Weight: 88 kg

DRUGS (9)
  1. TYSABRI [Suspect]
     Indication: MULTIPLE SCLEROSIS
     Route: 042
     Dates: start: 20080331, end: 20090930
  2. NEURONTIN [Concomitant]
     Indication: MULTIPLE SCLEROSIS
  3. BACLOFEN [Concomitant]
     Indication: TREMOR
  4. SULAR [Concomitant]
     Indication: HYPERTENSION
     Dates: start: 20000101
  5. COREG [Concomitant]
     Indication: HYPERTENSION
     Dates: start: 20090101
  6. BENICAR [Concomitant]
     Indication: HYPERTENSION
     Dates: start: 20090101
  7. ENABLEX [Concomitant]
     Indication: URINARY INCONTINENCE
     Dates: start: 20070101
  8. FLOMAX [Concomitant]
     Indication: URINARY INCONTINENCE
     Dates: start: 20090101
  9. BLOOD PRESSURE MEDICINE (NOS) [Concomitant]
     Indication: HYPERTENSION
     Dates: start: 20090101

REACTIONS (4)
  - FALL [None]
  - INFLUENZA [None]
  - PNEUMONIA [None]
  - PULMONARY OEDEMA [None]
